FAERS Safety Report 9113229 (Version 1)
Quarter: 2013Q1

REPORT INFORMATION
  Report Type: Spontaneous
  Country: IT (occurrence: IT)
  Receive Date: 20130211
  Receipt Date: 20130211
  Transmission Date: 20140127
  Serious: Yes (Death, Hospitalization)
  Sender: FDA-Public Use
  Company Number: IT-ELI_LILLY_AND_COMPANY-IT201302000635

PATIENT
  Age: 70 Year
  Sex: Female

DRUGS (2)
  1. HUMALOG LISPRO [Suspect]
     Dosage: UNK, UNKNOWN
  2. LANTUS [Concomitant]
     Dosage: UNK, UNKNOWN

REACTIONS (2)
  - Death [Fatal]
  - Dyspnoea [Unknown]
